FAERS Safety Report 6059560-X (Version None)
Quarter: 2009Q1

REPORT INFORMATION
  Report Type: 
  Country: None (occurrence: None)
  Receive Date: 20090127
  Receipt Date: 20090127
  Transmission Date: 20090719
  Serious: No
  Sender: FDA-Public Use
  Company Number: None

PATIENT
  Sex: Male
  Weight: 49.8957 kg

DRUGS (1)
  1. ZYRTEC [Suspect]
     Indication: SEASONAL ALLERGY
     Dosage: UNSURE ONCE DAILY PO
     Route: 048
     Dates: start: 20020513, end: 20040513

REACTIONS (1)
  - TOURETTE'S DISORDER [None]
